FAERS Safety Report 8193142-9 (Version None)
Quarter: 2012Q1

REPORT INFORMATION
  Report Type: 
  Country: None (occurrence: None)
  Receive Date: 20120308
  Receipt Date: 20120221
  Transmission Date: 20120608
  Serious: No
  Sender: FDA-Public Use
  Company Number: US-B.I. PHARMACEUTICALS,INC./RIDGEFIELD-2011-BP-06989BP

PATIENT
  Sex: Male
  Weight: 73.48 kg

DRUGS (14)
  1. NEXIUM [Concomitant]
     Indication: DYSPEPSIA
     Dosage: 40 MG
     Route: 048
  2. VITAMIN D [Concomitant]
     Dosage: 1000 MG
  3. POTASSIUM M [Concomitant]
     Indication: JOINT SWELLING
     Dosage: 40 MG
     Route: 048
  4. LOSARTAN POTASSIUM [Concomitant]
     Indication: HYPERTENSION
     Dosage: 100 MG
     Route: 048
     Dates: start: 20090201
  5. CRESTOR [Concomitant]
     Indication: BLOOD CHOLESTEROL INCREASED
     Dosage: 10 MG
     Route: 048
     Dates: start: 20100201
  6. LASIX [Concomitant]
     Indication: JOINT SWELLING
     Dosage: 80 MG
     Route: 048
  7. ASPIRIN [Concomitant]
     Dosage: 81 MG
     Route: 048
  8. PRADAXA [Suspect]
     Indication: ANTICOAGULANT THERAPY
  9. NEXIUM [Concomitant]
     Indication: HIATUS HERNIA
  10. QVAR 40 [Concomitant]
     Indication: CHRONIC OBSTRUCTIVE PULMONARY DISEASE
     Dosage: 4 PUF
  11. PRADAXA [Suspect]
     Indication: ATRIAL FIBRILLATION
     Dosage: 300 MG
     Route: 048
     Dates: start: 20110201
  12. RANITIDINE [Concomitant]
     Indication: DYSPEPSIA
     Dosage: 300 MG
     Route: 048
  13. FISH OIL [Concomitant]
     Indication: CARDIAC DISORDER
     Dosage: 1000 MG
     Route: 048
  14. ASCORBIC ACID [Concomitant]
     Dosage: 500 MG

REACTIONS (4)
  - MASS [None]
  - HEART RATE IRREGULAR [None]
  - OEDEMA PERIPHERAL [None]
  - SWELLING FACE [None]
